FAERS Safety Report 21365352 (Version 4)
Quarter: 2022Q4

REPORT INFORMATION
  Report Type: Spontaneous
  Country: US (occurrence: US)
  Receive Date: 20220922
  Receipt Date: 20221219
  Transmission Date: 20230112
  Serious: No
  Sender: FDA-Public Use
  Company Number: US-PFIZER INC-PV202200068386

PATIENT
  Age: 70 Year
  Sex: Female

DRUGS (2)
  1. IBRANCE [Suspect]
     Active Substance: PALBOCICLIB
     Dosage: 125 MG
     Dates: end: 20221020
  2. IBRANCE [Suspect]
     Active Substance: PALBOCICLIB
     Dosage: 125 MG
     Dates: start: 202211

REACTIONS (10)
  - Alopecia [Not Recovered/Not Resolved]
  - Abdominal discomfort [Recovered/Resolved]
  - Skin exfoliation [Unknown]
  - Fluid retention [Unknown]
  - Full blood count abnormal [Recovered/Resolved]
  - Nail disorder [Unknown]
  - Mood altered [Unknown]
  - Anxiety [Unknown]
  - Onycholysis [Unknown]
  - Product dose omission issue [Unknown]

NARRATIVE: CASE EVENT DATE: 20220101
